FAERS Safety Report 26123943 (Version 1)
Quarter: 2025Q4

REPORT INFORMATION
  Report Type: Spontaneous
  Country: US (occurrence: US)
  Receive Date: 20251205
  Receipt Date: 20251205
  Transmission Date: 20260118
  Serious: Yes (Death, Life-Threatening, Hospitalization, Other)
  Sender: PROCTER AND GAMBLE
  Company Number: US-PROCTER+GAMBLE-PH25020812

PATIENT
  Age: 63 Year
  Sex: Female

DRUGS (1)
  1. ACETAMINOPHEN [Suspect]
     Active Substance: ACETAMINOPHEN
     Dosage: 7.5 GRAM, DAILY

REACTIONS (10)
  - Hepatotoxicity [Fatal]
  - Coagulopathy [Fatal]
  - Overdose [Fatal]
  - Toxicity to various agents [Fatal]
  - Ammonia increased [Fatal]
  - Encephalopathy [Fatal]
  - Gastrointestinal haemorrhage [Fatal]
  - Hyperammonaemia [Fatal]
  - Acidosis [Fatal]
  - Mental status changes [Fatal]
